FAERS Safety Report 10158905 (Version 1)
Quarter: 2014Q2

REPORT INFORMATION
  Report Type: Spontaneous
  Country: US (occurrence: US)
  Receive Date: 20140508
  Receipt Date: 20140508
  Transmission Date: 20141212
  Serious: No
  Sender: FDA-Public Use
  Company Number: US-BIOGENIDEC-2014BI039482

PATIENT
  Age: 59 Year
  Sex: Male

DRUGS (4)
  1. TECFIDERA [Suspect]
     Indication: MULTIPLE SCLEROSIS
     Route: 048
     Dates: start: 20130801
  2. BACLOFEN [Concomitant]
  3. ADVAIR DISKUS [Concomitant]
  4. SIMVASTATIN [Concomitant]

REACTIONS (3)
  - Skin lesion [Unknown]
  - Neuropathy peripheral [Unknown]
  - Constipation [Unknown]
